FAERS Safety Report 9871040 (Version 1)
Quarter: 2014Q1

REPORT INFORMATION
  Report Type: Spontaneous
  Country: US (occurrence: None)
  Receive Date: 20140204
  Receipt Date: 20140204
  Transmission Date: 20141002
  Serious: Yes (Hospitalization)
  Sender: FDA-Public Use
  Company Number: None

PATIENT
  Age: 71 Year
  Sex: Female
  Weight: 55.3 kg

DRUGS (1)
  1. GEMCITABINE HYDROCHLORIDE [Suspect]
     Dates: start: 20140109

REACTIONS (8)
  - Dyspnoea [None]
  - Asthenia [None]
  - Pneumonia [None]
  - Renal failure acute [None]
  - Cardiac failure congestive [None]
  - Bronchitis [None]
  - Anaemia [None]
  - Chronic obstructive pulmonary disease [None]
